FAERS Safety Report 18199443 (Version 1)
Quarter: 2020Q3

REPORT INFORMATION
  Report Type: Spontaneous
  Country: SK (occurrence: SK)
  Receive Date: 20200826
  Receipt Date: 20200826
  Transmission Date: 20201103
  Serious: Yes (Other)
  Sender: FDA-Public Use
  Company Number: NVSC2020SK234386

PATIENT
  Age: 50 Year

DRUGS (6)
  1. FLUOROURACIL. [Suspect]
     Active Substance: FLUOROURACIL
     Indication: PANCREATIC CARCINOMA METASTATIC
     Dosage: UNK, FIRST LINE CHEMOTHERAPY
     Route: 065
     Dates: start: 201610, end: 201710
  2. OXALIPLATIN. [Suspect]
     Active Substance: OXALIPLATIN
     Indication: PANCREATIC CARCINOMA METASTATIC
     Dosage: UNK, FIRST LINE CHEMOTHERAPY
     Route: 065
     Dates: start: 201610
  3. IRINOTECAN [Suspect]
     Active Substance: IRINOTECAN
     Indication: PANCREATIC CARCINOMA METASTATIC
     Dosage: UNK, FIRST LINE CHEMOTHERAPY
     Route: 065
     Dates: start: 201610, end: 201710
  4. PEGFILGRASTIM [Concomitant]
     Active Substance: PEGFILGRASTIM
     Indication: PANCREATIC CARCINOMA METASTATIC
     Dosage: UNK
     Route: 065
  5. FOLINIC ACID [Suspect]
     Active Substance: LEUCOVORIN
     Indication: PANCREATIC CARCINOMA METASTATIC
     Dosage: UNK, FIRST LINE CHEMOTHERAPY
     Route: 065
     Dates: start: 201610, end: 201710
  6. CALCIUM FOLINATE [Suspect]
     Active Substance: LEUCOVORIN CALCIUM
     Indication: PANCREATIC CARCINOMA METASTATIC
     Dosage: UNK, FIRST LINE CHEMOTHERAPY
     Route: 065
     Dates: start: 201610, end: 201710

REACTIONS (2)
  - Product use in unapproved indication [Unknown]
  - Neurotoxicity [Unknown]
